FAERS Safety Report 5216016-1 (Version None)
Quarter: 2006Q4

REPORT INFORMATION
  Report Type: 
  Country: None (occurrence: None)
  Receive Date: 20061122
  Receipt Date: 20060314
  Transmission Date: 20070319
  Serious: Yes (Other)
  Sender: FDA-Public Use
  Company Number: 2006036263

PATIENT
  Sex: Male
  Weight: 124.7392 kg

DRUGS (6)
  1. LIPITOR [Suspect]
     Indication: BLOOD CHOLESTEROL INCREASED
     Dosage: 10 MG (10 MG, 1 IN 1 D), ORAL
     Route: 048
     Dates: start: 19970101, end: 20050101
  2. CRESTOR [Suspect]
     Indication: BLOOD CHOLESTEROL INCREASED
     Dosage: ORAL
     Route: 048
  3. TOPROL-XL [Concomitant]
  4. ALTACE [Concomitant]
  5. ASPIRIN [Concomitant]
  6. NIACIN [Concomitant]

REACTIONS (4)
  - BLOOD CHOLESTEROL ABNORMAL [None]
  - CHEST PAIN [None]
  - DYSPEPSIA [None]
  - MYALGIA [None]
